FAERS Safety Report 19991434 (Version 2)
Quarter: 2021Q4

REPORT INFORMATION
  Report Type: Spontaneous
  Country: US (occurrence: US)
  Receive Date: 20211025
  Receipt Date: 20211129
  Transmission Date: 20220303
  Serious: Yes (Other)
  Sender: FDA-Public Use
  Company Number: US-ALK-ABELLO A/S-2021AA003797

PATIENT

DRUGS (1)
  1. ASPERGILLUS FUMIGATUS [Suspect]
     Active Substance: ASPERGILLUS FUMIGATUS
     Indication: Product used for unknown indication
     Dosage: UNK
     Route: 058
     Dates: start: 20201130

REACTIONS (4)
  - Hypersensitivity [Unknown]
  - Injection site reaction [Unknown]
  - Feeling abnormal [Unknown]
  - Local reaction [Unknown]

NARRATIVE: CASE EVENT DATE: 20210604
